FAERS Safety Report 16892037 (Version 2)
Quarter: 2019Q4

REPORT INFORMATION
  Report Type: Report from Study
  Country: DE (occurrence: DE)
  Receive Date: 20191007
  Receipt Date: 20191226
  Transmission Date: 20200122
  Serious: Yes (Hospitalization, Other)
  Sender: FDA-Public Use
  Company Number: DE-GLAXOSMITHKLINE-DE2018012535

PATIENT
  Age: 83 Year
  Sex: Female

DRUGS (20)
  1. TOCILIZUMAB. [Suspect]
     Active Substance: TOCILIZUMAB
     Dosage: 162 MG, UNK
     Route: 058
     Dates: start: 201805
  2. CORTISONE ACETATE. [Concomitant]
     Active Substance: CORTISONE ACETATE
     Indication: PRODUCT USED FOR UNKNOWN INDICATION
     Dosage: 5 MG, QD
     Route: 065
  3. VALSACOR [Concomitant]
     Active Substance: VALSARTAN
     Indication: PRODUCT USED FOR UNKNOWN INDICATION
     Dosage: 80 MG, UNK
     Route: 065
  4. CANDESARTAN. [Concomitant]
     Active Substance: CANDESARTAN
     Indication: PRODUCT USED FOR UNKNOWN INDICATION
     Dosage: UNK
     Route: 065
  5. TOCILIZUMAB. [Suspect]
     Active Substance: TOCILIZUMAB
     Dosage: 162 UNK, UNK
     Route: 058
     Dates: start: 20190729, end: 20190810
  6. TORASEMID [Concomitant]
     Active Substance: TORSEMIDE
     Indication: PRODUCT USED FOR UNKNOWN INDICATION
     Route: 065
  7. BISOPROLOL [Concomitant]
     Active Substance: BISOPROLOL
     Indication: PRODUCT USED FOR UNKNOWN INDICATION
     Dosage: 1 DF, QD
     Route: 065
  8. DICLOFENAC SODIUM. [Suspect]
     Active Substance: DICLOFENAC SODIUM
     Indication: RHEUMATOID ARTHRITIS
     Dosage: IN THE EVENING
     Route: 065
  9. PANTOPRAZOLE [Concomitant]
     Active Substance: PANTOPRAZOLE
     Indication: PRODUCT USED FOR UNKNOWN INDICATION
     Dosage: UNK
     Route: 065
  10. ASPIRIN. [Concomitant]
     Active Substance: ASPIRIN
     Indication: PRODUCT USED FOR UNKNOWN INDICATION
     Dosage: UNK
     Route: 065
  11. SULPIRID [Concomitant]
     Active Substance: SULPIRIDE
     Indication: PRODUCT USED FOR UNKNOWN INDICATION
     Dosage: UNK
     Route: 065
  12. TOCILIZUMAB. [Suspect]
     Active Substance: TOCILIZUMAB
     Indication: RHEUMATOID ARTHRITIS
     Dosage: 162 MG, UNK
     Route: 058
     Dates: start: 20140723, end: 201807
  13. TOCILIZUMAB. [Suspect]
     Active Substance: TOCILIZUMAB
     Dosage: 162 UNK, UNK
     Route: 058
     Dates: start: 201811, end: 20190430
  14. TOCILIZUMAB. [Suspect]
     Active Substance: TOCILIZUMAB
     Dosage: 162 UNK, UNK
     Route: 058
     Dates: start: 20190610
  15. ZOPICLON [Concomitant]
     Active Substance: ZOPICLONE
     Indication: PRODUCT USED FOR UNKNOWN INDICATION
     Dosage: UNK
     Route: 065
  16. DICLOFENAC [Concomitant]
     Active Substance: DICLOFENAC
     Indication: PRODUCT USED FOR UNKNOWN INDICATION
     Dosage: UNK
     Route: 065
  17. TOCILIZUMAB. [Suspect]
     Active Substance: TOCILIZUMAB
     Dosage: 162 MG, UNK
     Route: 058
     Dates: start: 201806, end: 201807
  18. TOCILIZUMAB. [Suspect]
     Active Substance: TOCILIZUMAB
     Dosage: 162 UNK, UNK
     Route: 058
     Dates: start: 201908
  19. SYNTESTAN [Concomitant]
     Active Substance: CLOPREDNOL
     Indication: PRODUCT USED FOR UNKNOWN INDICATION
     Dosage: 2.5 MG, QD
     Route: 065
  20. SYNTESTAN [Concomitant]
     Active Substance: CLOPREDNOL
     Dosage: 5 MG, QD
     Route: 065

REACTIONS (7)
  - Cerebellar stroke [Not Recovered/Not Resolved]
  - Pain [Not Recovered/Not Resolved]
  - Dizziness [Recovered/Resolved]
  - Balance disorder [Unknown]
  - Hypotension [Recovered/Resolved]
  - Influenza [Recovered/Resolved]
  - Renal function test abnormal [Not Recovered/Not Resolved]

NARRATIVE: CASE EVENT DATE: 20160301
